FAERS Safety Report 7346755-8 (Version None)
Quarter: 2011Q1

REPORT INFORMATION
  Report Type: 
  Country: None (occurrence: None)
  Receive Date: 20110311
  Receipt Date: 20110304
  Transmission Date: 20110831
  Serious: Yes (Death, Hospitalization)
  Sender: FDA-Public Use
  Company Number: GB-BRISTOL-MYERS SQUIBB COMPANY-15370463

PATIENT
  Age: 76 Year
  Sex: Male

DRUGS (4)
  1. ASPIRIN [Concomitant]
     Dates: start: 20100101
  2. CARBOPLATIN [Suspect]
     Dosage: CYCLE 4
     Route: 042
     Dates: start: 20100831
  3. PEMETREXED DISODIUM [Suspect]
     Route: 042
     Dates: start: 20100831, end: 20100831
  4. FRAGMIN [Concomitant]
     Indication: LUNG NEOPLASM MALIGNANT
     Dosage: INTERR ON 20SEP2010
     Dates: start: 20100701

REACTIONS (3)
  - CONFUSIONAL STATE [None]
  - ENCEPHALITIS [None]
  - DEATH [None]
